FAERS Safety Report 6216851-7 (Version None)
Quarter: 2009Q2

REPORT INFORMATION
  Report Type: 
  Country: None (occurrence: None)
  Receive Date: 20090603
  Receipt Date: 20090603
  Transmission Date: 20091009
  Serious: No
  Sender: FDA-Public Use
  Company Number: None

PATIENT
  Sex: Female
  Weight: 120.2032 kg

DRUGS (1)
  1. POTASSIUM CHLORIDE [Suspect]
     Dosage: TWO CAPS THREE TIMES DAILY

REACTIONS (1)
  - OEDEMA PERIPHERAL [None]
